FAERS Safety Report 9844928 (Version 1)
Quarter: 2014Q1

REPORT INFORMATION
  Report Type: Spontaneous
  Country: US (occurrence: None)
  Receive Date: 20140122
  Receipt Date: 20140122
  Transmission Date: 20141002
  Serious: Yes (Death)
  Sender: FDA-Public Use
  Company Number: B0960231A

PATIENT
  Age: 60 Year
  Sex: Female

DRUGS (8)
  1. METFORMIN HYDROCHLORIDE [Suspect]
     Route: 048
  2. DIGOXIN [Suspect]
     Route: 048
  3. ATENOLOL [Suspect]
     Route: 048
  4. ONDANSETRON HYDROCHLORIDE [Suspect]
     Route: 048
  5. PRAVASTATIN [Suspect]
     Route: 048
  6. GLIPIZIDE [Suspect]
     Route: 048
  7. HCLTHIAZIDE + LISINOPRIL [Concomitant]
     Route: 048
  8. ZOLPIDEM [Suspect]
     Route: 048

REACTIONS (1)
  - Completed suicide [None]
